FAERS Safety Report 7227175-3 (Version None)
Quarter: 2011Q1

REPORT INFORMATION
  Report Type: 
  Country: None (occurrence: None)
  Receive Date: 20110114
  Receipt Date: 20110111
  Transmission Date: 20110831
  Serious: Yes (Hospitalization, Other)
  Sender: FDA-Public Use
  Company Number: BR-ABBOTT-10P-020-0666663-00

PATIENT
  Sex: Female
  Weight: 55 kg

DRUGS (9)
  1. HUMIRA [Suspect]
  2. CIPROFIBRATE [Concomitant]
     Indication: BLOOD TRIGLYCERIDES
     Dosage: FORM STRENGTH 100MG; 1 EVERY 24 HR
     Route: 048
  3. ENALAPRIL [Concomitant]
     Indication: HYPERTENSION
     Route: 048
  4. HUMIRA [Suspect]
     Indication: CROHN'S DISEASE
     Route: 058
     Dates: start: 20100101
  5. UNKNOWN MEDICATION [Concomitant]
     Indication: INFLAMMATION
     Route: 048
  6. INSULIN [Concomitant]
     Indication: DIABETES MELLITUS
     Dosage: 2 APPLICATIONS PER DAY
     Route: 058
  7. CLONAZEPAM [Concomitant]
     Indication: SEDATIVE THERAPY
     Route: 048
  8. CLONAZEPAM [Concomitant]
     Indication: ARRHYTHMIA PROPHYLAXIS
  9. GLUCOVANCE [Concomitant]
     Indication: DIABETES MELLITUS MANAGEMENT
     Route: 048

REACTIONS (12)
  - HYPERTENSION [None]
  - DUODENITIS [None]
  - PHARYNGEAL INFLAMMATION [None]
  - HAEMORRHOIDS [None]
  - BLOOD CHOLESTEROL INCREASED [None]
  - CARDIAC ARREST [None]
  - HIATUS HERNIA [None]
  - ABDOMINAL PAIN [None]
  - HAEMATOCHEZIA [None]
  - INTESTINAL FISTULA [None]
  - POST PROCEDURAL SWELLING [None]
  - LISTLESS [None]
